FAERS Safety Report 4385383-3 (Version None)
Quarter: 2004Q2

REPORT INFORMATION
  Report Type: 
  Country: None (occurrence: None)
  Receive Date: 20040622
  Receipt Date: 20040614
  Transmission Date: 20050107
  Serious: Yes (Hospitalization)
  Sender: FDA-Public Use
  Company Number: 2004UW12369

PATIENT
  Sex: Male

DRUGS (5)
  1. SEROQUEL [Suspect]
     Indication: MANIA
     Dosage: 200 MG PO; 100 MG PO
     Route: 048
     Dates: start: 20040611, end: 20040611
  2. SEROQUEL [Suspect]
     Indication: PSYCHOTIC DISORDER
     Dosage: 200 MG PO; 100 MG PO
     Route: 048
     Dates: start: 20040611, end: 20040611
  3. SEROQUEL [Suspect]
     Indication: MANIA
     Dosage: 200 MG PO; 100 MG PO
     Route: 048
     Dates: start: 20040612, end: 20040612
  4. SEROQUEL [Suspect]
     Indication: PSYCHOTIC DISORDER
     Dosage: 200 MG PO; 100 MG PO
     Route: 048
     Dates: start: 20040612, end: 20040612
  5. LAMICTAL [Concomitant]

REACTIONS (2)
  - BRADYCARDIA [None]
  - CARDIAC ARREST [None]
